FAERS Safety Report 8220669-3 (Version None)
Quarter: 2012Q1

REPORT INFORMATION
  Report Type: 
  Country: None (occurrence: None)
  Receive Date: 20120320
  Receipt Date: 20120307
  Transmission Date: 20120608
  Serious: Yes (Death)
  Sender: FDA-Public Use
  Company Number: JP-ELI_LILLY_AND_COMPANY-JP201108008314

PATIENT
  Sex: Male
  Weight: 47 kg

DRUGS (6)
  1. CYMBALTA [Suspect]
     Indication: BIPOLAR DISORDER
     Dosage: 20 MG, QD
     Route: 048
     Dates: start: 20110720
  2. ASPIRIN [Concomitant]
     Indication: ANGINA PECTORIS
     Dosage: UNK
     Route: 048
  3. ABILIFY [Concomitant]
     Indication: DEPRESSION
     Dosage: UNK
     Route: 048
  4. FLUVOXAMINE MALEATE [Concomitant]
     Indication: DEPRESSION
     Dosage: UNK
     Route: 048
  5. DEPAS [Concomitant]
     Indication: INSOMNIA
     Dosage: UNK
     Route: 048
  6. ZYPREXA [Concomitant]
     Indication: MANIA
     Dosage: UNK
     Route: 048

REACTIONS (7)
  - FALL [None]
  - SUBDURAL HAEMATOMA [None]
  - DEPRESSED LEVEL OF CONSCIOUSNESS [None]
  - DRUG INTERACTION [None]
  - LIP SWELLING [None]
  - HALLUCINATION, AUDITORY [None]
  - EXCORIATION [None]
